FAERS Safety Report 19750558 (Version 2)
Quarter: 2021Q3

REPORT INFORMATION
  Report Type: Report from Study
  Country: None (occurrence: US)
  Receive Date: 20210826
  Receipt Date: 20210915
  Transmission Date: 20211014
  Serious: Yes (Hospitalization)
  Sender: FDA-Public Use
  Company Number: US-ABBVIE-21K-163-4053660-00

PATIENT
  Age: 75 Year
  Sex: Female

DRUGS (1)
  1. HUMIRA [Suspect]
     Active Substance: ADALIMUMAB
     Indication: RHEUMATOID ARTHRITIS
     Dosage: CITRATE FREE
     Route: 058
     Dates: start: 20210708

REACTIONS (6)
  - Fall [Recovered/Resolved]
  - Pain [Unknown]
  - Head injury [Unknown]
  - Fall [Unknown]
  - Malaise [Unknown]
  - Alopecia [Unknown]

NARRATIVE: CASE EVENT DATE: 2021
